FAERS Safety Report 7968167-6 (Version None)
Quarter: 2011Q4

REPORT INFORMATION
  Report Type: 
  Country: None (occurrence: None)
  Receive Date: 20111209
  Receipt Date: 20111129
  Transmission Date: 20120403
  Serious: Yes (Hospitalization, Other)
  Sender: FDA-Public Use
  Company Number: PHHY2011US12520

PATIENT
  Sex: Female

DRUGS (16)
  1. PREVACID [Concomitant]
     Dosage: 30 MG, UNK
  2. COUMADIN [Concomitant]
     Dosage: 5 MG, UNK
  3. LABETALOL HCL [Concomitant]
     Indication: HYPERTENSION
     Dosage: 400 MG, TWO IN MORNING AND 2 AT NIGHT
     Route: 048
     Dates: start: 20090101
  4. FUROSEMIDE [Concomitant]
     Indication: OEDEMA
     Dosage: 20 MG, ONCE A WEEK
     Dates: end: 20100401
  5. COUMADIN [Concomitant]
     Dosage: 2.5 MG, QD
  6. AMITRIPTYLINE HCL [Concomitant]
     Dosage: 100 MG, UNK
     Route: 048
     Dates: start: 20060101
  7. ANTIBIOTICS [Concomitant]
     Indication: URINARY TRACT INFECTION
     Dosage: UNK UKN, UNK
  8. DOXAZOSIN MESYLATE [Concomitant]
     Dosage: 2 MG, QD
  9. ANTIHYPERTENSIVE DRUGS [Concomitant]
     Dosage: UNK UKN, UNK
     Dates: start: 20110816
  10. TEKTURNA [Suspect]
     Indication: HYPERTENSION
     Dosage: 300 MG, QD
     Route: 048
     Dates: start: 20090101
  11. NEXIUM [Concomitant]
     Dosage: 40 MG, UNK
  12. FISH OIL [Concomitant]
  13. LOVASTATIN [Concomitant]
     Indication: BLOOD CHOLESTEROL
     Dosage: 40 MG, BID (ONE IN MORNING AND ONE OR TWO AT NIGHT)
     Route: 048
     Dates: start: 20060101
  14. METFORMIN HCL [Concomitant]
     Dosage: 500 MG, BID
  15. POTASSIUM ACETATE [Concomitant]
     Indication: OEDEMA
     Dosage: 20 MEQ, PRN
  16. RAMIPRIL [Concomitant]

REACTIONS (19)
  - CHEST PAIN [None]
  - CHEST DISCOMFORT [None]
  - PULMONARY OEDEMA [None]
  - DYSPNOEA EXERTIONAL [None]
  - CREPITATIONS [None]
  - GAIT DISTURBANCE [None]
  - ABDOMINAL PAIN UPPER [None]
  - DIASTOLIC DYSFUNCTION [None]
  - ATRIAL FIBRILLATION [None]
  - FATIGUE [None]
  - OEDEMA PERIPHERAL [None]
  - BLOOD PRESSURE FLUCTUATION [None]
  - JUGULAR VEIN DISTENSION [None]
  - DIZZINESS [None]
  - LEFT VENTRICULAR HYPERTROPHY [None]
  - WEIGHT DECREASED [None]
  - CARDIAC FAILURE CONGESTIVE [None]
  - MITRAL VALVE INCOMPETENCE [None]
  - PULMONARY HYPERTENSION [None]
